FAERS Safety Report 21259968 (Version 2)
Quarter: 2023Q2

REPORT INFORMATION
  Report Type: Spontaneous
  Country: US (occurrence: US)
  Receive Date: 20220826
  Receipt Date: 20230512
  Transmission Date: 20230722
  Serious: Yes (Other)
  Sender: FDA-Public Use
  Company Number: US-NOVARTISPH-NVSC2022US190545

PATIENT
  Age: 71 Year
  Sex: Female

DRUGS (4)
  1. SACUBITRIL\VALSARTAN [Suspect]
     Active Substance: SACUBITRIL\VALSARTAN
     Indication: Cardiac failure acute
     Dosage: 24/26 MG
     Route: 065
  2. EMPAGLIFLOZIN [Suspect]
     Active Substance: EMPAGLIFLOZIN
     Indication: Cardiac failure acute
     Dosage: 10 MG, ON HOSPITAL DAY 1
     Route: 065
  3. METOPROLOL SUCCINATE [Concomitant]
     Active Substance: METOPROLOL SUCCINATE
     Indication: Arteriosclerosis coronary artery
     Dosage: 25 MG
     Route: 065
  4. SPIRONOLACTONE [Concomitant]
     Active Substance: SPIRONOLACTONE
     Indication: Arteriosclerosis coronary artery
     Dosage: 12.5 MG, ON HOSPITAL DAY 2
     Route: 065

REACTIONS (3)
  - Hyponatraemia [Recovered/Resolved]
  - Concomitant disease aggravated [Recovered/Resolved]
  - Product use in unapproved indication [Unknown]
